FAERS Safety Report 7136225-4 (Version None)
Quarter: 2010Q4

REPORT INFORMATION
  Report Type: 
  Country: None (occurrence: None)
  Receive Date: 20101206
  Receipt Date: 20101124
  Transmission Date: 20110411
  Serious: Yes (Hospitalization)
  Sender: FDA-Public Use
  Company Number: US-BIOGENIDEC-2010BI038634

PATIENT
  Age: 63 Year
  Sex: Male

DRUGS (3)
  1. AVONEX [Suspect]
     Indication: MULTIPLE SCLEROSIS
     Route: 030
     Dates: end: 20101110
  2. AVONEX [Suspect]
     Route: 030
  3. UNKNOWN MEDICATIONS [Concomitant]
     Indication: ASTHENIA

REACTIONS (1)
  - STAPHYLOCOCCAL INFECTION [None]
